FAERS Safety Report 10922170 (Version 1)
Quarter: 2015Q1

REPORT INFORMATION
  Report Type: Spontaneous
  Country: US (occurrence: US)
  Receive Date: 20150317
  Receipt Date: 20150317
  Transmission Date: 20150721
  Serious: No
  Sender: FDA-Public Use
  Company Number: US-GLAXOSMITHKLINE-US2015030037

PATIENT
  Age: 60 Year
  Sex: Male

DRUGS (3)
  1. VERAMYST [Suspect]
     Active Substance: FLUTICASONE FUROATE
     Indication: INFLUENZA LIKE ILLNESS
  2. AMOXICILLIN. [Concomitant]
     Active Substance: AMOXICILLIN
  3. VERAMYST [Suspect]
     Active Substance: FLUTICASONE FUROATE
     Indication: SINUSITIS
     Dosage: 2 DF, QD
     Route: 045
     Dates: start: 20150227, end: 20150304

REACTIONS (6)
  - Nasal congestion [Unknown]
  - Head discomfort [Recovering/Resolving]
  - Condition aggravated [Recovering/Resolving]
  - Headache [Recovering/Resolving]
  - Rhinorrhoea [Recovering/Resolving]
  - Drug ineffective [Unknown]

NARRATIVE: CASE EVENT DATE: 20150228
